FAERS Safety Report 8812298 (Version 1)
Quarter: 2012Q4

REPORT INFORMATION
  Report Type: 
  Country: US (occurrence: US)
  Receive Date: 20120927
  Receipt Date: 20120927
  Transmission Date: 20130627
  Serious: Yes (Death, Hospitalization)
  Sender: FDA-Public Use
  Company Number: US-ROCHE-1123394

PATIENT
  Sex: Male

DRUGS (7)
  1. AVASTIN [Suspect]
     Indication: RENAL CANCER
     Route: 065
  2. SORAFENIB [Concomitant]
     Route: 065
  3. SORAFENIB [Concomitant]
     Route: 065
  4. SUTENT [Concomitant]
  5. TORISEL [Concomitant]
     Dosage: 4 cycle
     Route: 065
  6. IL-2 [Concomitant]
  7. INTRON-A [Concomitant]

REACTIONS (2)
  - Death [Fatal]
  - Disease progression [Unknown]
